FAERS Safety Report 8942110 (Version 2)
Quarter: 2013Q2

REPORT INFORMATION
  Report Type: Spontaneous
  Country: DK (occurrence: DK)
  Receive Date: 20121130
  Receipt Date: 20130405
  Transmission Date: 20140414
  Serious: Yes (Other)
  Sender: FDA-Public Use
  Company Number: DK-GLAXOSMITHKLINE-B0845972A

PATIENT
  Sex: Female

DRUGS (13)
  1. ZINACEF [Suspect]
     Indication: PNEUMONIA
     Route: 065
     Dates: start: 20090810
  2. METRONIDAZOL [Suspect]
     Indication: PRODUCT USED FOR UNKNOWN INDICATION
     Route: 065
  3. BIOCLAVID [Suspect]
     Indication: PRODUCT USED FOR UNKNOWN INDICATION
     Route: 065
  4. THIAMINE [Concomitant]
  5. POTASSIUM CHLORIDE [Concomitant]
  6. PLAVIX [Concomitant]
  7. ASPIRIN [Concomitant]
  8. CIPROFLOXACIN [Concomitant]
  9. PARACETAMOL [Concomitant]
  10. PANTOPRAZOLE [Concomitant]
  11. FERRO DURETTER [Concomitant]
  12. FURIX [Concomitant]
  13. RISPERDAL [Concomitant]

REACTIONS (3)
  - Dysbacteriosis [Unknown]
  - Gastrooesophageal reflux disease [Unknown]
  - Fungal skin infection [Unknown]
